FAERS Safety Report 10172908 (Version 1)
Quarter: 2014Q2

REPORT INFORMATION
  Report Type: Spontaneous
  Country: AU (occurrence: AU)
  Receive Date: 20140515
  Receipt Date: 20140515
  Transmission Date: 20141212
  Serious: Yes (Death, Hospitalization)
  Sender: FDA-Public Use
  Company Number: AU-ROCHE-1401898

PATIENT
  Sex: Female

DRUGS (4)
  1. XOLAIR [Suspect]
     Indication: PRODUCT USED FOR UNKNOWN INDICATION
     Dosage: STANDARD DOSING SCHEDULE
     Route: 065
     Dates: start: 201303
  2. WARFARIN [Concomitant]
  3. INDERAL [Concomitant]
  4. LASIX [Concomitant]

REACTIONS (2)
  - Cardiac failure [Fatal]
  - Asthma [Unknown]
